FAERS Safety Report 11577368 (Version 1)
Quarter: 2015Q3

REPORT INFORMATION
  Report Type: Spontaneous
  Country: US (occurrence: US)
  Receive Date: 20150930
  Receipt Date: 20150930
  Transmission Date: 20151125
  Serious: No
  Sender: FDA-Public Use
  Company Number: US-DRREDDYS-USA/USA/15/0046221

PATIENT
  Sex: Female
  Weight: 55.33 kg

DRUGS (8)
  1. HUMIRA [Suspect]
     Active Substance: ADALIMUMAB
     Route: 065
     Dates: start: 200704, end: 2009
  2. HUMIRA [Suspect]
     Active Substance: ADALIMUMAB
     Route: 065
  3. TYLENOL [Concomitant]
     Active Substance: ACETAMINOPHEN
     Indication: PAIN
     Route: 065
  4. HUMIRA [Suspect]
     Active Substance: ADALIMUMAB
     Indication: RHEUMATOID ARTHRITIS
     Route: 065
     Dates: start: 200402
  5. HUMIRA [Suspect]
     Active Substance: ADALIMUMAB
     Route: 065
  6. HUMIRA [Suspect]
     Active Substance: ADALIMUMAB
     Route: 065
  7. HUMIRA [Suspect]
     Active Substance: ADALIMUMAB
     Route: 065
  8. AUGMENTIN [Suspect]
     Active Substance: AMOXICILLIN\CLAVULANATE POTASSIUM
     Indication: PRODUCT USED FOR UNKNOWN INDICATION
     Route: 065

REACTIONS (3)
  - Drug hypersensitivity [Unknown]
  - Product quality issue [Unknown]
  - Ulcer [Unknown]
